FAERS Safety Report 4308353-X (Version None)
Quarter: 2004Q1

REPORT INFORMATION
  Report Type: 
  Country: None (occurrence: None)
  Receive Date: 20040301
  Receipt Date: 20040107
  Transmission Date: 20041129
  Serious: Yes (Hospitalization)
  Sender: FDA-Public Use
  Company Number: PHEH2004US00570

PATIENT
  Age: 29 Year
  Sex: Female

DRUGS (1)
  1. ZELNORM [Suspect]
     Indication: INTESTINAL HYPOMOTILITY
     Dosage: UNK, BID
     Route: 048
     Dates: start: 20021101, end: 20021201

REACTIONS (3)
  - ABDOMINAL PAIN [None]
  - COLECTOMY PARTIAL [None]
  - POST PROCEDURAL COMPLICATION [None]
